FAERS Safety Report 8886193 (Version 1)
Quarter: 2012Q4

REPORT INFORMATION
  Report Type: 
  Country: JP (occurrence: JP)
  Receive Date: 20121105
  Receipt Date: 20121105
  Transmission Date: 20130627
  Serious: Yes (Life-Threatening)
  Sender: FDA-Public Use
  Company Number: JP-ASTRAZENECA-2012SE83464

PATIENT
  Age: 77 Year
  Sex: Male

DRUGS (2)
  1. CRESTOR [Suspect]
     Indication: HYPERCHOLESTEROLAEMIA
     Dosage: Dose unknown
     Route: 048
     Dates: start: 2010, end: 201210
  2. PLAVIX [Suspect]
     Indication: HYPERCHOLESTEROLAEMIA
     Dosage: Dose unknown
     Route: 048
     Dates: start: 2010, end: 201210

REACTIONS (1)
  - Interstitial lung disease [Not Recovered/Not Resolved]
